FAERS Safety Report 17588353 (Version 1)
Quarter: 2020Q1

REPORT INFORMATION
  Report Type: Spontaneous
  Country: GB (occurrence: US)
  Receive Date: 20200326
  Receipt Date: 20200326
  Transmission Date: 20200409
  Serious: Yes (Other)
  Sender: FDA-Public Use
  Company Number: US-RARE DISEASE THERAPEUTICS, INC.-2082041

PATIENT
  Age: 80 Year
  Sex: Male

DRUGS (6)
  1. OPIODS [Concomitant]
     Active Substance: UNSPECIFIED INGREDIENT
     Dates: start: 201904
  2. ANTI-EMETICS [Concomitant]
     Dates: start: 201904
  3. ANTIBIOTICS [Concomitant]
     Active Substance: UNSPECIFIED INGREDIENT
     Dates: start: 201904
  4. DIPHENHYDRAMINE. [Concomitant]
     Active Substance: DIPHENHYDRAMINE
     Dates: start: 201904
  5. CROFAB [Suspect]
     Active Substance: CROTALIDAE POLYVALENT IMMUNE FAB (OVINE)
     Dates: start: 201904
  6. ANAVIP [Suspect]
     Active Substance: PIT VIPER (CROTALINAE) IMMUNE GLOBULIN ANTIVENIN (EQUINE)
     Indication: SNAKE BITE
     Dates: start: 201904

REACTIONS (6)
  - Cholelithiasis [Unknown]
  - Cholecystitis [Unknown]
  - Platelet count decreased [Unknown]
  - Wound necrosis [Unknown]
  - Abdominal pain [Unknown]
  - Prothrombin time prolonged [Unknown]

NARRATIVE: CASE EVENT DATE: 201904
